FAERS Safety Report 17301007 (Version 1)
Quarter: 2020Q1

REPORT INFORMATION
  Report Type: Spontaneous
  Country: CN (occurrence: CN)
  Receive Date: 20200122
  Receipt Date: 20200122
  Transmission Date: 20200409
  Serious: Yes (Other)
  Sender: FDA-Public Use
  Company Number: CN-LEO PHARMA-327489

PATIENT
  Age: 26 Year
  Sex: Male

DRUGS (2)
  1. DAIVONEX [Suspect]
     Active Substance: CALCIPOTRIENE
     Indication: PSORIASIS
     Dosage: UNKNOWN
  2. CEFRADINE [Suspect]
     Active Substance: CEPHRADINE
     Indication: PARONYCHIA
     Dosage: UNKNOWN

REACTIONS (1)
  - Pemphigoid [Recovered/Resolved]
